FAERS Safety Report 25151907 (Version 12)
Quarter: 2025Q3

REPORT INFORMATION
  Report Type: Report from Study
  Country: EU (occurrence: EU)
  Receive Date: 20250402
  Receipt Date: 20250923
  Transmission Date: 20251020
  Serious: Yes (Hospitalization, Other)
  Sender: PFIZER
  Company Number: EU-PFM-2025-00835

PATIENT
  Age: 73 Year
  Sex: Female
  Weight: 80 kg

DRUGS (15)
  1. ENCORAFENIB [Suspect]
     Active Substance: ENCORAFENIB
     Indication: Malignant melanoma
     Dosage: 225 MG, QD (1/DAY)
     Route: 048
     Dates: start: 20240322, end: 20240325
  2. ENCORAFENIB [Suspect]
     Active Substance: ENCORAFENIB
     Dosage: 225 MG, QD (1/DAY)
     Route: 048
     Dates: start: 20240328
  3. ENCORAFENIB [Suspect]
     Active Substance: ENCORAFENIB
     Dosage: 450 MG, QD (1/DAY)
     Route: 048
     Dates: start: 20240403, end: 20250211
  4. ENCORAFENIB [Suspect]
     Active Substance: ENCORAFENIB
     Dosage: 450 MG, QD (1/DAY)
     Route: 048
     Dates: start: 20250213
  5. BINIMETINIB [Suspect]
     Active Substance: BINIMETINIB
     Indication: Malignant melanoma
     Dosage: 30 MG, BID (2/DAY)
     Route: 048
     Dates: start: 20240322, end: 20240325
  6. BINIMETINIB [Suspect]
     Active Substance: BINIMETINIB
     Dosage: 60 MG, QD (1/DAY)
     Route: 048
     Dates: start: 20240328
  7. BINIMETINIB [Suspect]
     Active Substance: BINIMETINIB
     Dosage: 45 MG, BID (2/DAY)
     Route: 048
     Dates: start: 20240403, end: 20250211
  8. BINIMETINIB [Suspect]
     Active Substance: BINIMETINIB
     Dosage: 45 MG, BID (2/DAY)
     Route: 048
     Dates: start: 20250213
  9. BUDESONIDE [Concomitant]
     Active Substance: BUDESONIDE
     Indication: Prophylaxis
     Route: 065
     Dates: end: 20240425
  10. ACETYLCYSTEINE [Concomitant]
     Active Substance: ACETYLCYSTEINE
     Indication: Prophylaxis
     Route: 065
     Dates: end: 20240425
  11. INSULIN GLARGINE [Concomitant]
     Active Substance: INSULIN GLARGINE
     Route: 065
  12. LEVOTHYROXINE SODIUM [Concomitant]
     Active Substance: LEVOTHYROXINE SODIUM
     Route: 065
     Dates: start: 20240328
  13. POLYETHYLENE GLYCOLS [Concomitant]
     Active Substance: POLYETHYLENE GLYCOLS
     Indication: Vomiting
     Route: 065
     Dates: start: 20240326, end: 20240425
  14. METFORMIN [Concomitant]
     Active Substance: METFORMIN HYDROCHLORIDE
     Route: 065
     Dates: end: 20240626
  15. HYDROCORTISONE [Concomitant]
     Active Substance: HYDROCORTISONE
     Indication: Prophylaxis
     Route: 065
     Dates: end: 20250207

REACTIONS (7)
  - Large intestinal ulcer [Not Recovered/Not Resolved]
  - Coronary artery disease [Recovered/Resolved]
  - Bundle branch block left [Recovered/Resolved]
  - Hypophysitis [Not Recovered/Not Resolved]
  - Syncope [Not Recovered/Not Resolved]
  - Iron deficiency [Not Recovered/Not Resolved]
  - Blood creatinine increased [Recovered/Resolved]

NARRATIVE: CASE EVENT DATE: 20250202
